FAERS Safety Report 25709546 (Version 1)
Quarter: 2025Q3

REPORT INFORMATION
  Report Type: Spontaneous
  Country: EU (occurrence: EU)
  Receive Date: 20250821
  Receipt Date: 20250821
  Transmission Date: 20251020
  Serious: Yes (Hospitalization)
  Sender: ACCORD
  Company Number: None

PATIENT
  Age: 59 Year
  Sex: Female

DRUGS (1)
  1. METHOTREXATE [Suspect]
     Active Substance: METHOTREXATE
     Indication: Product used for unknown indication
     Dates: start: 20250612, end: 20250618

REACTIONS (4)
  - Medication error [Unknown]
  - Photosensitivity reaction [Unknown]
  - Mucosal inflammation [Unknown]
  - Pancytopenia [Unknown]

NARRATIVE: CASE EVENT DATE: 20250613
